FAERS Safety Report 9736498 (Version 1)
Quarter: 2013Q4

REPORT INFORMATION
  Report Type: Spontaneous
  Country: FR (occurrence: FR)
  Receive Date: 20131206
  Receipt Date: 20131206
  Transmission Date: 20140711
  Serious: Yes (Other)
  Sender: FDA-Public Use
  Company Number: FR-MYLANLABS-2013S1026420

PATIENT
  Age: 72 Year
  Sex: Male

DRUGS (1)
  1. VANCOMYCINE [Suspect]
     Indication: STAPHYLOCOCCAL INFECTION
     Route: 042
     Dates: start: 20131102, end: 20131102

REACTIONS (3)
  - Red man syndrome [Recovered/Resolved]
  - Incorrect drug administration duration [Recovered/Resolved]
  - Medication error [Recovered/Resolved]
